FAERS Safety Report 5840286-X (Version None)
Quarter: 2008Q3

REPORT INFORMATION
  Report Type: 
  Country: None (occurrence: None)
  Receive Date: 20080811
  Receipt Date: 20080801
  Transmission Date: 20090109
  Serious: Yes (Other)
  Sender: FDA-Public Use
  Company Number: CA-JNJCH-2008020554

PATIENT
  Sex: Male

DRUGS (1)
  1. UNISOM [Suspect]
     Indication: INTENTIONAL DRUG MISUSE
     Dosage: TEXT:UNSPECIFIED
     Route: 048

REACTIONS (1)
  - SUICIDE ATTEMPT [None]
